FAERS Safety Report 7536689-8 (Version None)
Quarter: 2011Q2

REPORT INFORMATION
  Report Type: 
  Country: None (occurrence: None)
  Receive Date: 20110609
  Receipt Date: 20110524
  Transmission Date: 20111010
  Serious: Yes (Congenital Anomaly)
  Sender: FDA-Public Use
  Company Number: A0930628A

PATIENT
  Sex: Female
  Weight: 3.3 kg

DRUGS (2)
  1. PRENATAL VITAMINS [Concomitant]
  2. PAXIL [Suspect]
     Indication: DEPRESSION
     Dosage: 10MG UNKNOWN
     Route: 064

REACTIONS (3)
  - ATRIAL SEPTAL DEFECT [None]
  - DRUG EXPOSURE DURING PREGNANCY [None]
  - MATERNAL DRUGS AFFECTING FOETUS [None]
